FAERS Safety Report 9678170 (Version 4)
Quarter: 2014Q1

REPORT INFORMATION
  Report Type: Report from Study
  Country: IT (occurrence: IT)
  Receive Date: 20131108
  Receipt Date: 20140204
  Transmission Date: 20141002
  Serious: Yes (Hospitalization)
  Sender: FDA-Public Use
  Company Number: FR-ALEXION PHARMACEUTICALS INC.-A201302591

PATIENT
  Age: 42 Year
  Sex: Male
  Weight: 70 kg

DRUGS (4)
  1. SOLIRIS [Suspect]
     Indication: GLOMERULONEPHRITIS MEMBRANOPROLIFERATIVE
     Dosage: 900 MG, QW
     Route: 042
     Dates: start: 20120720
  2. SOLIRIS [Suspect]
     Indication: OFF LABEL USE
     Dosage: 1200 MG, Q2W
     Route: 042
     Dates: end: 20130607
  3. PROGRAF [Concomitant]
     Indication: PROPHYLAXIS AGAINST TRANSPLANT REJECTION
     Dosage: 3 MG, UNK
     Route: 048
     Dates: start: 20130129, end: 20131118
  4. METHYLPREDNISOLONE [Concomitant]
     Indication: PROPHYLAXIS AGAINST TRANSPLANT REJECTION
     Dosage: 4 MG, UNK
     Route: 048
     Dates: start: 20130129, end: 20131118

REACTIONS (6)
  - Escherichia bacteraemia [Recovered/Resolved]
  - Septic arthritis streptococcal [Recovered/Resolved]
  - Blood creatinine increased [Unknown]
  - Off label use [Recovered/Resolved]
  - Nausea [Unknown]
  - Vomiting [Unknown]
